FAERS Safety Report 18099333 (Version 3)
Quarter: 2024Q2

REPORT INFORMATION
  Report Type: Spontaneous
  Country: IT (occurrence: DE)
  Receive Date: 20200731
  Receipt Date: 20240401
  Transmission Date: 20240715
  Serious: Yes (Death, Other)
  Sender: FDA-Public Use
  Company Number: IT-002147023-NVSC2020IT196720

PATIENT
  Age: 36 Year
  Sex: Male
  Weight: 102 kg

DRUGS (5)
  1. PREGABALIN [Interacting]
     Active Substance: PREGABALIN
     Indication: Anxiety disorder
     Dosage: UNK
     Route: 065
  2. TEMAZEPAM [Interacting]
     Active Substance: TEMAZEPAM
     Indication: Product used for unknown indication
     Dosage: UNK
     Route: 065
  3. OXAZEPAM [Concomitant]
     Active Substance: OXAZEPAM
     Indication: Product used for unknown indication
     Dosage: UNK
     Route: 065
  4. ALPRAZOLAM [Concomitant]
     Active Substance: ALPRAZOLAM
     Indication: Product used for unknown indication
     Dosage: UNK
     Route: 065
  5. LORAZEPAM [Concomitant]
     Active Substance: LORAZEPAM
     Indication: Product used for unknown indication
     Dosage: UNK
     Route: 065

REACTIONS (3)
  - Drug interaction [Fatal]
  - Death [Fatal]
  - Depressed level of consciousness [Fatal]
